FAERS Safety Report 11169532 (Version 2)
Quarter: 2015Q2

REPORT INFORMATION
  Report Type: Report from Study
  Country: US (occurrence: US)
  Receive Date: 20150605
  Receipt Date: 20150610
  Transmission Date: 20150821
  Serious: Yes (Death, Hospitalization)
  Sender: FDA-Public Use
  Company Number: PHHO2015US009992

PATIENT
  Age: 62 Year
  Sex: Male
  Weight: 115 kg

DRUGS (4)
  1. AFINITOR [Suspect]
     Active Substance: EVEROLIMUS
     Dosage: 5 MG, QD
     Route: 048
     Dates: start: 20120614, end: 20120620
  2. COMPARATOR LENALIDOMIDE [Suspect]
     Active Substance: LENALIDOMIDE
     Indication: LYMPHOMA
     Dosage: 10 MG, QD
     Dates: start: 20120507
  3. COMPARATOR LENALIDOMIDE [Suspect]
     Active Substance: LENALIDOMIDE
     Dosage: 5 MG, QD
     Dates: start: 20120614, end: 20120620
  4. AFINITOR [Suspect]
     Active Substance: EVEROLIMUS
     Indication: LYMPHOMA
     Dosage: 5 MG, QD
     Route: 048
     Dates: start: 20120507

REACTIONS (4)
  - Pneumonia [Recovered/Resolved]
  - Malignant neoplasm progression [Fatal]
  - Thrombocytopenia [Fatal]
  - Lymphoma [Fatal]

NARRATIVE: CASE EVENT DATE: 20120529
